FAERS Safety Report 8272371-X (Version None)
Quarter: 2012Q2

REPORT INFORMATION
  Report Type: 
  Country: None (occurrence: None)
  Receive Date: 20120410
  Receipt Date: 20120405
  Transmission Date: 20120825
  Serious: Yes (Other)
  Sender: FDA-Public Use
  Company Number: US-PFIZER INC-2012086304

PATIENT
  Age: 21 Year
  Sex: Male
  Weight: 62.132 kg

DRUGS (1)
  1. VIAGRA [Suspect]
     Indication: ERECTILE DYSFUNCTION
     Dosage: UNK
     Route: 048
     Dates: start: 20120402

REACTIONS (3)
  - PENILE ERYTHEMA [None]
  - PENILE PAIN [None]
  - PENILE SWELLING [None]
